FAERS Safety Report 7100612-0 (Version None)
Quarter: 2010Q4

REPORT INFORMATION
  Report Type: 
  Country: None (occurrence: None)
  Receive Date: 20101113
  Receipt Date: 20100222
  Transmission Date: 20110411
  Serious: Yes (Other)
  Sender: FDA-Public Use
  Company Number: US-ALLERGAN-1002330US

PATIENT
  Sex: Male

DRUGS (3)
  1. BOTOXA? [Suspect]
     Indication: PARKINSON'S DISEASE
     Dosage: UNK
     Dates: start: 20100101, end: 20100101
  2. BOTOXA? [Suspect]
     Indication: EYELID PTOSIS
     Dosage: UNK
     Dates: start: 20090601, end: 20090601
  3. MYOBLOC [Suspect]
     Indication: PARKINSON'S DISEASE

REACTIONS (1)
  - DYSPHAGIA [None]
